FAERS Safety Report 7079253 (Version 32)
Quarter: 2014Q2

REPORT INFORMATION
  Report Type: Spontaneous
  Country: US (occurrence: US)
  Receive Date: 20090812
  Receipt Date: 20140502
  Transmission Date: 20141212
  Serious: Yes (Hospitalization, Other)
  Sender: FDA-Public Use
  Company Number: PHEH2009US08867

PATIENT
  Age: 54 Year
  Sex: Male
  Weight: 95.69 kg

DRUGS (11)
  1. ZOMETA [Suspect]
     Indication: BONE LOSS
     Route: 042
     Dates: start: 200403, end: 200604
  2. ZOMETA [Suspect]
     Indication: OSTEOPOROSIS
  3. AREDIA [Suspect]
     Indication: BONE LOSS
     Route: 042
  4. AREDIA [Suspect]
     Indication: OSTEOPOROSIS
  5. NEXIUM [Concomitant]
  6. PLAVIX [Concomitant]
  7. CELEXA [Concomitant]
  8. ASPIRIN [Concomitant]
  9. AMBIEN [Concomitant]
  10. VELCADE [Concomitant]
  11. DECADRON [Concomitant]

REACTIONS (181)
  - Pneumonia [Recovered/Resolved]
  - Osteonecrosis of jaw [Unknown]
  - Injury [Unknown]
  - Pain [Unknown]
  - Anxiety [Unknown]
  - Disability [Unknown]
  - Osteomyelitis [Unknown]
  - Cardiac disorder [Unknown]
  - Plasma cell myeloma [Unknown]
  - Pleural effusion [Unknown]
  - Atelectasis [Unknown]
  - Compression fracture [Unknown]
  - Osteopenia [Unknown]
  - Renal cyst [Unknown]
  - Hypogammaglobulinaemia [Unknown]
  - Coronary artery disease [Unknown]
  - Arteriosclerosis coronary artery [Unknown]
  - Myocardial infarction [Unknown]
  - Depression [Unknown]
  - Neck mass [Unknown]
  - Cellulitis [Recovered/Resolved]
  - Immunodeficiency [Unknown]
  - Lymphadenitis [Unknown]
  - Skin ulcer [Unknown]
  - Dermatitis [Unknown]
  - Cyst rupture [Unknown]
  - Mitral valve calcification [Unknown]
  - Aortic arteriosclerosis [Unknown]
  - Dilatation ventricular [Unknown]
  - Dilatation atrial [Unknown]
  - Bacterial infection [Recovering/Resolving]
  - Sputum increased [Unknown]
  - Dyspnoea exertional [Not Recovered/Not Resolved]
  - Cough [Unknown]
  - Pyrexia [Unknown]
  - Chest discomfort [Unknown]
  - Diverticulitis [Unknown]
  - Basal cell carcinoma [Unknown]
  - Second primary malignancy [Unknown]
  - Joint dislocation [Unknown]
  - Joint injury [Unknown]
  - Rotator cuff syndrome [Unknown]
  - Facet joint syndrome [Unknown]
  - Bone neoplasm [Unknown]
  - Asthma [Unknown]
  - Chest pain [Unknown]
  - Oedema peripheral [Unknown]
  - Haemorrhoids [Unknown]
  - Diverticulum [Unknown]
  - Large intestine polyp [Unknown]
  - Chronic obstructive pulmonary disease [Unknown]
  - Pulmonary granuloma [Unknown]
  - Osteoarthritis [Unknown]
  - Intervertebral disc degeneration [Unknown]
  - Spinal osteoarthritis [Unknown]
  - Spinal cord compression [Unknown]
  - Exostosis [Unknown]
  - Scoliosis [Unknown]
  - Pericardial effusion [Unknown]
  - Pleurisy [Unknown]
  - Pulmonary fibrosis [Unknown]
  - Deformity thorax [Unknown]
  - Pathological fracture [Unknown]
  - Lung infiltration [Unknown]
  - Spinal deformity [Unknown]
  - Lung disorder [Unknown]
  - Intervertebral disc protrusion [Unknown]
  - Spinal column stenosis [Unknown]
  - Abscess jaw [Unknown]
  - Infected cyst [Unknown]
  - Ejection fraction decreased [Unknown]
  - Neoplasm [Unknown]
  - Rib fracture [Recovered/Resolved]
  - Flank pain [Unknown]
  - Amyotrophy [Unknown]
  - Gait disturbance [Unknown]
  - Musculoskeletal chest pain [Unknown]
  - Sinus headache [Unknown]
  - Sinusitis [Unknown]
  - Oropharyngeal pain [Unknown]
  - Increased tendency to bruise [Unknown]
  - Blood cholesterol increased [Unknown]
  - Vision blurred [Unknown]
  - Fatigue [Unknown]
  - Bronchitis [Unknown]
  - Dyspnoea [Unknown]
  - Back pain [Unknown]
  - Dizziness [Unknown]
  - Gouty tophus [Unknown]
  - Testicular disorder [Unknown]
  - Hyperlipidaemia [Unknown]
  - Normochromic normocytic anaemia [Unknown]
  - Essential hypertension [Unknown]
  - Dyslipidaemia [Unknown]
  - Haematoma [Unknown]
  - Bone swelling [Unknown]
  - Mitral valve incompetence [Unknown]
  - Aortic valve incompetence [Unknown]
  - Metastases to spine [Unknown]
  - Bone loss [Unknown]
  - Cardiomyopathy [Unknown]
  - Gastrooesophageal reflux disease [Unknown]
  - Hypercholesterolaemia [Unknown]
  - Tuberculosis [Unknown]
  - Hepatitis [Unknown]
  - Thrombosis [Unknown]
  - Anaemia [Unknown]
  - Device related infection [Unknown]
  - Device breakage [Unknown]
  - Jaw fracture [Unknown]
  - Bone deformity [Unknown]
  - Neuropathy peripheral [Unknown]
  - Exposed bone in jaw [Unknown]
  - Osteolysis [Unknown]
  - Vertebral foraminal stenosis [Unknown]
  - Intervertebral disc space narrowing [Unknown]
  - Skin cancer [Unknown]
  - Abdominal pain [Unknown]
  - Obesity [Unknown]
  - Deep vein thrombosis [Unknown]
  - Muscular weakness [Unknown]
  - Tricuspid valve incompetence [Unknown]
  - Sinus arrhythmia [Unknown]
  - Renal failure acute [Unknown]
  - Hyperkalaemia [Unknown]
  - Pneumothorax [Unknown]
  - Haemorrhage [Unknown]
  - Soft tissue mass [Unknown]
  - Tachypnoea [Unknown]
  - Bronchospasm [Unknown]
  - Pneumonitis [Unknown]
  - Kyphosis [Unknown]
  - Myalgia [Unknown]
  - Neck pain [Unknown]
  - Neoplasm skin [Unknown]
  - Viral infection [Unknown]
  - Influenza [Unknown]
  - Eye pruritus [Unknown]
  - Ear pain [Unknown]
  - Pharyngitis [Unknown]
  - Nasal congestion [Unknown]
  - Hordeolum [Unknown]
  - Eye discharge [Unknown]
  - Eye pain [Unknown]
  - Rhinitis [Unknown]
  - Abdominal distension [Unknown]
  - Muscle spasms [Unknown]
  - Diarrhoea [Unknown]
  - Skin lesion [Unknown]
  - Wound [Unknown]
  - Erythema [Unknown]
  - Rash [Unknown]
  - Skin exfoliation [Unknown]
  - Skin irritation [Unknown]
  - Papule [Unknown]
  - Laceration [Recovering/Resolving]
  - Nasopharyngitis [Unknown]
  - Nasal mucosal disorder [Unknown]
  - Tonsillar hypertrophy [Unknown]
  - Headache [Unknown]
  - Pharyngeal erythema [Unknown]
  - Productive cough [Unknown]
  - Sputum purulent [Unknown]
  - Dysphonia [Unknown]
  - Ear discomfort [Unknown]
  - Rhinorrhoea [Unknown]
  - Bursitis [Unknown]
  - Joint swelling [Unknown]
  - Acute sinusitis [Unknown]
  - Painful respiration [Unknown]
  - Upper-airway cough syndrome [Unknown]
  - Blood glucose increased [Unknown]
  - Bone erosion [Unknown]
  - Bone fragmentation [Unknown]
  - Lymphoedema [Unknown]
  - Oral cavity fistula [Unknown]
  - Dental plaque [Unknown]
  - Tooth discolouration [Unknown]
  - Loose tooth [Unknown]
  - Dental caries [Unknown]
  - Musculoskeletal pain [Unknown]
